FAERS Safety Report 24322279 (Version 1)
Quarter: 2024Q3

REPORT INFORMATION
  Report Type: Spontaneous
  Country: US (occurrence: US)
  Receive Date: 20240916
  Receipt Date: 20240916
  Transmission Date: 20241017
  Serious: Yes (Life-Threatening, Hospitalization, Other)
  Sender: INDOCO
  Company Number: US-Indoco-000611

PATIENT
  Age: 48 Year
  Sex: Female
  Weight: 110 kg

DRUGS (2)
  1. SUCCINYLCHOLINE CHLORIDE [Suspect]
     Active Substance: SUCCINYLCHOLINE CHLORIDE
     Indication: Anaesthesia
     Dosage: 100 TO 120 MG, ABOUT 1 MG/KG TBW
     Route: 042
  2. METHOHEXITAL [Concomitant]
     Active Substance: METHOHEXITAL
     Indication: Anaesthesia
     Dosage: 90 MG
     Route: 042

REACTIONS (3)
  - Hypoxia [Recovered/Resolved]
  - Paralysis [Recovered/Resolved]
  - Upper airway obstruction [Recovered/Resolved]
